FAERS Safety Report 19089450 (Version 3)
Quarter: 2021Q4

REPORT INFORMATION
  Report Type: Report from Study
  Country: UG (occurrence: UG)
  Receive Date: 20210403
  Receipt Date: 20211231
  Transmission Date: 20220303
  Serious: Yes (Hospitalization, Other)
  Sender: FDA-Public Use
  Company Number: UG-CIPLA LTD.-2021UG02458

PATIENT

DRUGS (5)
  1. LOPINAVIR\RITONAVIR [Suspect]
     Active Substance: LOPINAVIR\RITONAVIR
     Indication: HIV infection
     Dosage: 1 DOSAGE FORM, BID, (120/30 MG)
     Route: 048
     Dates: start: 20171023, end: 20180116
  2. LOPINAVIR\RITONAVIR [Suspect]
     Active Substance: LOPINAVIR\RITONAVIR
     Dosage: 1 DOSAGE FORM, BID, (120/30 MG)
     Route: 048
     Dates: start: 20180117, end: 20180123
  3. LAMIVUDINE\ZIDOVUDINE [Suspect]
     Active Substance: LAMIVUDINE\ZIDOVUDINE
     Indication: HIV infection
     Dosage: 1 DOSAGE FORM, BID (90/40 MG)
     Route: 048
     Dates: start: 20171023, end: 20180116
  4. LAMIVUDINE\ZIDOVUDINE [Suspect]
     Active Substance: LAMIVUDINE\ZIDOVUDINE
     Dosage: 1 DOSAGE FORM, BID (90/40 MG)
     Route: 048
     Dates: start: 20180117, end: 20180123
  5. BACTRIM [Concomitant]
     Active Substance: SULFAMETHOXAZOLE\TRIMETHOPRIM
     Indication: Prophylaxis
     Dosage: UNK
     Route: 065

REACTIONS (6)
  - Oedema [Not Recovered/Not Resolved]
  - Malnutrition [Not Recovered/Not Resolved]
  - Pulmonary tuberculosis [Unknown]
  - Oral candidiasis [Recovered/Resolved]
  - Cough [Not Recovered/Not Resolved]
  - Diarrhoea [Not Recovered/Not Resolved]

NARRATIVE: CASE EVENT DATE: 20171107
